FAERS Safety Report 6602970-X (Version None)
Quarter: 2010Q1

REPORT INFORMATION
  Report Type: 
  Country: None (occurrence: None)
  Receive Date: 20100226
  Receipt Date: 20100217
  Transmission Date: 20100710
  Serious: Yes (Other)
  Sender: FDA-Public Use
  Company Number: FR-BAYER-200934516GPV

PATIENT
  Age: 37 Year
  Sex: Female

DRUGS (1)
  1. MIRENA [Suspect]
     Indication: DRUG USE FOR UNKNOWN INDICATION
     Route: 015
     Dates: start: 20090220, end: 20090622

REACTIONS (5)
  - ABDOMINAL PAIN [None]
  - AMENORRHOEA [None]
  - DEVICE DISLOCATION [None]
  - POST ABORTION HAEMORRHAGE [None]
  - PREGNANCY WITH CONTRACEPTIVE DEVICE [None]
